FAERS Safety Report 9805210 (Version 2)
Quarter: 2014Q1

REPORT INFORMATION
  Report Type: Spontaneous
  Country: JP (occurrence: JP)
  Receive Date: 20140109
  Receipt Date: 20140109
  Transmission Date: 20141002
  Serious: Yes (Hospitalization)
  Sender: FDA-Public Use
  Company Number: JP-009507513-1311JPN006821

PATIENT
  Age: 87 Year
  Sex: Female

DRUGS (14)
  1. PNEUMOVAX NP [Suspect]
     Indication: PROPHYLAXIS
     Route: 058
     Dates: start: 20131111, end: 20131111
  2. ADALAT CR [Suspect]
     Dosage: 20 MG, BID
     Route: 048
     Dates: end: 201311
  3. OLMETEC [Suspect]
     Dosage: 20 MG, BID
     Route: 048
     Dates: end: 201311
  4. MAINTATE [Suspect]
     Dosage: 2.5 MG, BID
     Route: 048
     Dates: end: 201311
  5. GASTER D [Suspect]
     Dosage: 20 MG, BID
     Route: 048
     Dates: end: 201311
  6. ALDOMET [Suspect]
     Dosage: 250 MG, BID
     Route: 048
     Dates: end: 201311
  7. PAXIL [Suspect]
     Dosage: 10 MG, QD
     Route: 048
     Dates: end: 201311
  8. DEPAS [Suspect]
     Dosage: 0.5 MG, QD
     Route: 048
     Dates: end: 201311
  9. BENZALIN [Suspect]
     Dosage: 5.5 MG, QD
     Route: 048
     Dates: end: 201311
  10. MYSLEE [Suspect]
     Dosage: 10 MG, QD
     Route: 048
     Dates: end: 201311
  11. INTEBAN [Suspect]
     Dosage: FORMULATION:OIT, QD
     Dates: end: 201311
  12. LOXONIN [Suspect]
     Dosage: FORMULATION:EXT, QD
     Dates: end: 201311
  13. FRANDOL [Suspect]
     Dosage: FORMULATION: TAP; 40 MG, QD
     Dates: end: 201311
  14. KEISHI-KA-JUTSU-BU-TO [Suspect]
     Dosage: UNK, TID
     Route: 048
     Dates: end: 201311

REACTIONS (3)
  - Platelet count decreased [Recovering/Resolving]
  - Blood creatine phosphokinase increased [Recovering/Resolving]
  - C-reactive protein increased [Recovering/Resolving]
